FAERS Safety Report 16178239 (Version 1)
Quarter: 2019Q2

REPORT INFORMATION
  Report Type: Spontaneous
  Country: FR (occurrence: FR)
  Receive Date: 20190410
  Receipt Date: 20190410
  Transmission Date: 20190711
  Serious: Yes (Other)
  Sender: FDA-Public Use
  Company Number: FR-BAUSCH-BL-2019-010221

PATIENT
  Sex: Female

DRUGS (3)
  1. CELESTAMINE [Suspect]
     Active Substance: BETAMETHASONE\DEXCHLORPHENIRAMINE MALEATE
     Indication: NASOPHARYNGITIS
     Dosage: 2 TABLETS, IN THE MORNING
     Route: 048
     Dates: start: 20190322
  2. PREDNISOLONE SODIUM PHOSPHATE. [Suspect]
     Active Substance: PREDNISOLONE SODIUM PHOSPHATE
     Indication: RESPIRATORY DISORDER
     Route: 065
  3. CELESTAMINE [Suspect]
     Active Substance: BETAMETHASONE\DEXCHLORPHENIRAMINE MALEATE
     Indication: SEASONAL ALLERGY
     Route: 048
     Dates: end: 2009

REACTIONS (6)
  - Sensation of blood flow [Recovering/Resolving]
  - Breast cancer [Recovered/Resolved]
  - Respiratory disorder [Recovering/Resolving]
  - Skin plaque [Recovering/Resolving]
  - Feeling hot [Recovering/Resolving]
  - Erythema [Recovering/Resolving]

NARRATIVE: CASE EVENT DATE: 2012
